FAERS Safety Report 10388879 (Version 1)
Quarter: 2014Q1

REPORT INFORMATION
  Report Type: Spontaneous
  Country: US (occurrence: None)
  Receive Date: 20140306
  Receipt Date: 20140306
  Transmission Date: 20141002
  Serious: Yes (Other)
  Sender: FDA-Public Use
  Company Number: 163-21880-13071569

PATIENT
  Age: 76 Year
  Sex: Male
  Weight: 87.54 kg

DRUGS (10)
  1. REVLIMID (LENALIDOMIDE) (25 MILLIGRAM, CAPSULES) [Suspect]
     Indication: PLASMA CELL MYELOMA
     Route: 048
     Dates: start: 201201, end: 2012
  2. ALPRAZOLAM [Concomitant]
  3. SPIRIVA (TIOTROPIUM BROMIDE) [Concomitant]
  4. XARELTO (RIVAROXABAN) [Concomitant]
  5. PREDNISONE [Concomitant]
  6. PRILOSEC (OMEPRAZOLE) [Concomitant]
  7. LEVOFLOXACIN [Concomitant]
  8. COLCHICINE [Concomitant]
  9. CYMBALTA (DULOXETINE HYDROCHLORIDE) [Concomitant]
  10. LIMBREL (FLAVOCOXID) [Concomitant]

REACTIONS (2)
  - Thrombocytopenia [None]
  - Pancytopenia [None]
